FAERS Safety Report 21228931 (Version 3)
Quarter: 2022Q4

REPORT INFORMATION
  Report Type: Report from Study
  Country: US (occurrence: US)
  Receive Date: 20220818
  Receipt Date: 20221209
  Transmission Date: 20230113
  Serious: No
  Sender: FDA-Public Use
  Company Number: US-BIOVITRUM-2022US09645

PATIENT
  Sex: Female

DRUGS (2)
  1. KINERET [Suspect]
     Active Substance: ANAKINRA
     Indication: Product used for unknown indication
     Dates: start: 20210119
  2. KINERET [Suspect]
     Active Substance: ANAKINRA
     Dates: start: 20201216

REACTIONS (3)
  - COVID-19 [Unknown]
  - Infection [Unknown]
  - Product dose omission issue [Unknown]
